FAERS Safety Report 8900209 (Version 3)
Quarter: 2013Q4

REPORT INFORMATION
  Report Type: Spontaneous
  Country: IE (occurrence: IE)
  Receive Date: 20121109
  Receipt Date: 20131125
  Transmission Date: 20140711
  Serious: Yes (Disabling)
  Sender: FDA-Public Use
  Company Number: IE-US-EMD SERONO, INC.-7167457

PATIENT
  Age: 32 Year
  Sex: Female
  Weight: 62 kg

DRUGS (1)
  1. REBIF [Suspect]
     Indication: RELAPSING-REMITTING MULTIPLE SCLEROSIS
     Route: 058
     Dates: start: 20100205

REACTIONS (5)
  - Injection site ulcer [Recovered/Resolved with Sequelae]
  - Injection site injury [Unknown]
  - Injection site reaction [Recovered/Resolved with Sequelae]
  - Injection site pain [Recovering/Resolving]
  - Injection site induration [Recovering/Resolving]
